FAERS Safety Report 12089913 (Version 3)
Quarter: 2016Q1

REPORT INFORMATION
  Report Type: Report from Study
  Country: DE (occurrence: DE)
  Receive Date: 20160218
  Receipt Date: 20160225
  Transmission Date: 20160526
  Serious: Yes (Hospitalization, Other)
  Sender: FDA-Public Use
  Company Number: DE-ABBVIE-16K-062-1558810-00

PATIENT
  Age: 35 Year
  Sex: Male

DRUGS (5)
  1. SALBUTAMOL [Concomitant]
     Active Substance: ALBUTEROL
     Indication: PRODUCT USED FOR UNKNOWN INDICATION
  2. HUMIRA [Suspect]
     Active Substance: ADALIMUMAB
     Indication: CROHN^S DISEASE
     Route: 058
     Dates: start: 201510
  3. PREDNISOLON [Concomitant]
     Active Substance: PREDNISOLONE
     Indication: PRODUCT USED FOR UNKNOWN INDICATION
     Dosage: DOSE REDUCED TO 7.5 MG PER DAY
     Dates: start: 20160204
  4. PREDNISOLON [Concomitant]
     Active Substance: PREDNISOLONE
     Dosage: 5 MG PER DAY, FOLLOWED BY GRADUAL DOSE REDUCTION OF 1 MG PER WEEK
     Dates: start: 20160205
  5. AZATHIOPRINE. [Concomitant]
     Active Substance: AZATHIOPRINE
     Indication: PROPHYLAXIS

REACTIONS (5)
  - Post procedural diarrhoea [Not Recovered/Not Resolved]
  - Haemoglobin decreased [Unknown]
  - Procedural pain [Not Recovered/Not Resolved]
  - Crohn^s disease [Unknown]
  - Lipoma [Unknown]

NARRATIVE: CASE EVENT DATE: 201601
